FAERS Safety Report 11155636 (Version 1)
Quarter: 2015Q2

REPORT INFORMATION
  Report Type: Spontaneous
  Country: GB (occurrence: GB)
  Receive Date: 20150602
  Receipt Date: 20150602
  Transmission Date: 20150821
  Serious: Yes (Other)
  Sender: FDA-Public Use
  Company Number: GB-TEVA-565610ACC

PATIENT
  Age: 55 Year
  Sex: Male
  Weight: 90 kg

DRUGS (30)
  1. LANSOPRAZOLE. [Concomitant]
     Active Substance: LANSOPRAZOLE
  2. LEVETIRACETAM. [Suspect]
     Active Substance: LEVETIRACETAM
     Indication: SEIZURE
     Dosage: 1000 MILLIGRAM DAILY; 1ST DOSE WAS INTRAVEOUS, SUBSEQUENT WERE ENTERAL
     Dates: start: 20150514, end: 20150515
  3. DOXAZOSIN [Concomitant]
     Active Substance: DOXAZOSIN\DOXAZOSIN MESYLATE
  4. INSULIN SOURCE UNSPECIFIED [Concomitant]
  5. ADDIPHOS [Concomitant]
     Active Substance: POTASSIUM HYDROXIDE\POTASSIUM PHOSPHATE, DIBASIC\SODIUM PHOSPHATE, DIBASIC, ANHYDROUS
  6. CLOPIDOGREL [Concomitant]
     Active Substance: CLOPIDOGREL BISULFATE
  7. DOCUSATE [Concomitant]
     Active Substance: DOCUSATE
  8. LORAZEPAM. [Concomitant]
     Active Substance: LORAZEPAM
  9. MINOXIDIL. [Concomitant]
     Active Substance: MINOXIDIL
  10. PARACETAMOL [Concomitant]
     Active Substance: ACETAMINOPHEN
  11. FUROSEMIDE. [Concomitant]
     Active Substance: FUROSEMIDE
  12. MIRCERA [Concomitant]
     Active Substance: METHOXY POLYETHYLENE GLYCOL-EPOETIN BETA
  13. ALFACALCIDOL [Concomitant]
     Active Substance: ALFACALCIDOL
  14. ASCORBIC ACID. [Concomitant]
     Active Substance: ASCORBIC ACID
  15. FOLIC ACID. [Concomitant]
     Active Substance: FOLIC ACID
  16. MAGNESIUM [Concomitant]
     Active Substance: MAGNESIUM
  17. MEROPENEM. [Concomitant]
     Active Substance: MEROPENEM
  18. SANDO-K [Concomitant]
     Active Substance: POTASSIUM BICARBONATE\POTASSIUM CHLORIDE
  19. HYDRALAZINE [Concomitant]
     Active Substance: HYDRALAZINE HYDROCHLORIDE
  20. LACTULOSE. [Concomitant]
     Active Substance: LACTULOSE
  21. SENNA [Concomitant]
     Active Substance: SENNA LEAF\SENNOSIDES\SENNOSIDES A AND B
  22. VENOFER [Concomitant]
     Active Substance: IRON SUCROSE
  23. AMLODIPINE [Concomitant]
     Active Substance: AMLODIPINE BESYLATE
  24. DEXMEDETOMIDINE [Concomitant]
     Active Substance: DEXMEDETOMIDINE
  25. BISOPROLOL [Concomitant]
     Active Substance: BISOPROLOL
  26. CHLORAMPHENICOL [Concomitant]
     Active Substance: CHLORAMPHENICOL
  27. DALTEPARIN SODIUM [Concomitant]
     Active Substance: DALTEPARIN SODIUM
  28. FENTANYL. [Concomitant]
     Active Substance: FENTANYL
  29. GLICLAZIDE [Concomitant]
     Active Substance: GLICLAZIDE
  30. SODIUM BICARBONATE. [Concomitant]
     Active Substance: SODIUM BICARBONATE

REACTIONS (1)
  - Methaemoglobinaemia [Recovering/Resolving]

NARRATIVE: CASE EVENT DATE: 20150514
